FAERS Safety Report 4829674-8 (Version None)
Quarter: 2005Q4

REPORT INFORMATION
  Report Type: 
  Country: None (occurrence: None)
  Receive Date: 20051116
  Receipt Date: 20050922
  Transmission Date: 20060501
  Serious: Yes (Hospitalization)
  Sender: FDA-Public Use
  Company Number: US-MERCK-0509USA03361

PATIENT
  Age: 67 Year
  Sex: Male
  Weight: 143 kg

DRUGS (11)
  1. VIOXX [Suspect]
     Indication: OSTEOARTHRITIS
     Route: 048
     Dates: start: 20000601, end: 20010201
  2. SKELAXIN [Concomitant]
     Route: 065
  3. ULTRAM [Concomitant]
     Route: 065
  4. ACETAMINOPHEN AND PROPOXYPHENE NAPSYLATE [Concomitant]
     Route: 065
  5. OXYCODONE [Concomitant]
     Route: 065
  6. ENALAPRIL MALEATE [Concomitant]
     Route: 065
  7. PLAVIX [Concomitant]
     Route: 065
  8. NORVASC [Concomitant]
     Route: 065
  9. WARFARIN [Concomitant]
     Route: 065
  10. CELEXA [Concomitant]
     Route: 065
  11. PLAVIX [Concomitant]
     Route: 065

REACTIONS (5)
  - BLADDER DISORDER [None]
  - BLADDER MASS [None]
  - CHEST PAIN [None]
  - ISCHAEMIC STROKE [None]
  - TRANSIENT ISCHAEMIC ATTACK [None]
